FAERS Safety Report 9410300 (Version 2)
Quarter: 2013Q3

REPORT INFORMATION
  Report Type: Spontaneous
  Country: US (occurrence: US)
  Receive Date: 20130719
  Receipt Date: 20130805
  Transmission Date: 20140515
  Serious: No
  Sender: FDA-Public Use
  Company Number: US-PFIZER INC-2013211306

PATIENT
  Age: 75 Year
  Sex: Male

DRUGS (8)
  1. LYRICA [Suspect]
     Indication: PAIN
     Dosage: 25 MG, 3X/DAY
     Route: 048
     Dates: start: 201307
  2. LYRICA [Suspect]
     Dosage: 25 MG, SINGLE
     Route: 048
     Dates: start: 20130709, end: 20130709
  3. FINASTERIDE [Concomitant]
     Dosage: 5 MG, 1X/DAY
  4. TAMSULOSIN [Concomitant]
     Dosage: 0.4 MG, 1X/DAY
  5. CRESTOR [Concomitant]
     Dosage: 5 MG, 1X/DAY
  6. OMEPRAZOLE [Concomitant]
     Dosage: 40 MG, 1X/DAY
  7. DIOVAN (VALSARTAN) [Concomitant]
     Dosage: 80 MG, 1X/DAY
  8. TRAMADOL/ACETAMINOPHEN [Concomitant]
     Dosage: 37.5/325, 2 TABS EVERY 8 HOURS (MAX 6 TABS DAILY)

REACTIONS (1)
  - Urticaria [Recovered/Resolved]
